FAERS Safety Report 17100087 (Version 1)
Quarter: 2019Q4

REPORT INFORMATION
  Report Type: Spontaneous
  Country: RU (occurrence: RU)
  Receive Date: 20191202
  Receipt Date: 20191202
  Transmission Date: 20200122
  Serious: Yes (Life-Threatening)
  Sender: FDA-Public Use
  Company Number: RU-BAYER-2019-216370

PATIENT
  Age: 41 Year
  Sex: Male

DRUGS (1)
  1. AVELOX [Suspect]
     Active Substance: MOXIFLOXACIN HYDROCHLORIDE

REACTIONS (1)
  - Myocarditis [Recovered/Resolved with Sequelae]
